FAERS Safety Report 24098921 (Version 3)
Quarter: 2024Q4

REPORT INFORMATION
  Report Type: Report from Study
  Country: US (occurrence: US)
  Receive Date: 20240716
  Receipt Date: 20241004
  Transmission Date: 20250115
  Serious: Yes (Other)
  Sender: ABBVIE
  Company Number: US-ABBVIE-5802800

PATIENT
  Sex: Female

DRUGS (1)
  1. RINVOQ [Suspect]
     Active Substance: UPADACITINIB
     Indication: Rheumatoid arthritis
     Dosage: FORM STRENGTH 15 MILLIGRAM
     Route: 048
     Dates: start: 20240213

REACTIONS (5)
  - Back pain [Recovered/Resolved]
  - Joint stiffness [Not Recovered/Not Resolved]
  - Finger deformity [Unknown]
  - Musculoskeletal stiffness [Recovered/Resolved]
  - Trigger finger [Unknown]

NARRATIVE: CASE EVENT DATE: 20240101
